FAERS Safety Report 20913370 (Version 1)
Quarter: 2022Q2

REPORT INFORMATION
  Report Type: Spontaneous
  Country: US (occurrence: US)
  Receive Date: 20220603
  Receipt Date: 20220603
  Transmission Date: 20220721
  Serious: No
  Sender: FDA-Public Use
  Company Number: US-BRISTOL-MYERS SQUIBB COMPANY-2022-035228

PATIENT
  Age: 67 Year
  Sex: Female

DRUGS (1)
  1. ORENCIA [Suspect]
     Active Substance: ABATACEPT
     Indication: Rheumatoid arthritis
     Route: 058

REACTIONS (5)
  - White blood cell count increased [Recovering/Resolving]
  - Urinary tract infection [Recovering/Resolving]
  - Constipation [Recovering/Resolving]
  - Stress [Unknown]
  - Abdominal discomfort [Unknown]
